FAERS Safety Report 22692208 (Version 6)
Quarter: 2023Q4

REPORT INFORMATION
  Report Type: Spontaneous
  Country: US (occurrence: US)
  Receive Date: 20230711
  Receipt Date: 20231219
  Transmission Date: 20240110
  Serious: Yes (Other)
  Sender: FDA-Public Use
  Company Number: US-PFIZER INC-202300243808

PATIENT
  Age: 79 Year
  Sex: Female

DRUGS (3)
  1. DOFETILIDE [Suspect]
     Active Substance: DOFETILIDE
     Dosage: 250 UG
  2. TOPROL XL [Concomitant]
     Active Substance: METOPROLOL SUCCINATE
     Indication: Hypertension
     Dosage: 25 MG, 2X/DAY
     Route: 048
  3. PRADAXA [Concomitant]
     Active Substance: DABIGATRAN ETEXILATE MESYLATE
     Indication: Anticoagulant therapy
     Dosage: 75 MG, 2X/DAY
     Dates: start: 2004

REACTIONS (13)
  - Cardiac flutter [Unknown]
  - Cardiac ablation [Unknown]
  - Atrioventricular block [Unknown]
  - Drug ineffective [Unknown]
  - Drug intolerance [Unknown]
  - Migraine [Unknown]
  - Vertigo [Unknown]
  - Fatigue [Unknown]
  - Anxiety [Unknown]
  - Dizziness [Unknown]
  - Asthenia [Unknown]
  - Malaise [Unknown]
  - Oesophageal disorder [Unknown]

NARRATIVE: CASE EVENT DATE: 20150101
